FAERS Safety Report 9134651 (Version 1)
Quarter: 2013Q1

REPORT INFORMATION
  Report Type: Spontaneous
  Country: US (occurrence: US)
  Receive Date: 20130304
  Receipt Date: 20130304
  Transmission Date: 20140127
  Serious: No
  Sender: FDA-Public Use
  Company Number: US-PFIZER INC-2013074950

PATIENT
  Age: 42 Year
  Sex: Male
  Weight: 74.8 kg

DRUGS (3)
  1. NEURONTIN [Suspect]
     Dosage: 600 MG, 3X/DAY
     Dates: start: 201301, end: 201301
  2. SEROQUEL [Concomitant]
     Dosage: 200 MG, 1X/DAY (AT NIGHT)
  3. RISPERDAL [Concomitant]
     Dosage: 3 MG, 1X/DAY (AT NIGHT)

REACTIONS (1)
  - Headache [Recovered/Resolved]
